FAERS Safety Report 5519244-0 (Version None)
Quarter: 2007Q4

REPORT INFORMATION
  Report Type: 
  Country: None (occurrence: None)
  Receive Date: 20071116
  Receipt Date: 20071106
  Transmission Date: 20080405
  Serious: Yes (Hospitalization)
  Sender: FDA-Public Use
  Company Number: US-AMGEN-US251539

PATIENT
  Sex: Female

DRUGS (3)
  1. ENBREL [Suspect]
     Indication: PSORIATIC ARTHROPATHY
     Route: 058
     Dates: start: 20030301
  2. ENBREL [Suspect]
     Indication: PSORIASIS
  3. METHOTREXATE [Concomitant]
     Route: 065
     Dates: start: 19990101

REACTIONS (6)
  - ARTHRALGIA [None]
  - CAESAREAN SECTION [None]
  - NAIL DISORDER [None]
  - POSTOPERATIVE WOUND INFECTION [None]
  - PSORIASIS [None]
  - STAPHYLOCOCCAL INFECTION [None]
